FAERS Safety Report 7389348-9 (Version None)
Quarter: 2011Q2

REPORT INFORMATION
  Report Type: 
  Country: None (occurrence: None)
  Receive Date: 20110401
  Receipt Date: 20110324
  Transmission Date: 20111010
  Serious: Yes (Other)
  Sender: FDA-Public Use
  Company Number: A0920921A

PATIENT
  Sex: Female

DRUGS (2)
  1. PAXIL [Suspect]
     Route: 048
  2. CHANTIX [Suspect]
     Dosage: 1TAB UNKNOWN
     Route: 048

REACTIONS (4)
  - WITHDRAWAL SYNDROME [None]
  - HALLUCINATION, AUDITORY [None]
  - VERTIGO [None]
  - MALAISE [None]
